FAERS Safety Report 10578179 (Version 3)
Quarter: 2015Q1

REPORT INFORMATION
  Report Type: Report from Study
  Country: AU (occurrence: AU)
  Receive Date: 20141112
  Receipt Date: 20150121
  Transmission Date: 20150720
  Serious: Yes (Hospitalization)
  Sender: FDA-Public Use
  Company Number: AU-BIOGENIDEC-2013BI106596

PATIENT
  Age: 45 Year
  Sex: Female

DRUGS (7)
  1. TECFIDERA [Suspect]
     Active Substance: DIMETHYL FUMARATE
     Indication: MULTIPLE SCLEROSIS
  2. TECFIDERA [Suspect]
     Active Substance: DIMETHYL FUMARATE
     Indication: MULTIPLE SCLEROSIS
     Route: 048
  3. TECFIDERA [Suspect]
     Active Substance: DIMETHYL FUMARATE
     Indication: MULTIPLE SCLEROSIS
     Route: 048
     Dates: start: 20131102
  4. TECFIDERA [Suspect]
     Active Substance: DIMETHYL FUMARATE
     Indication: MULTIPLE SCLEROSIS
  5. FAMPYRA [Concomitant]
     Active Substance: DALFAMPRIDINE
  6. TECFIDERA [Suspect]
     Active Substance: DIMETHYL FUMARATE
     Indication: MULTIPLE SCLEROSIS
     Route: 048
     Dates: start: 20131026
  7. TECFIDERA [Suspect]
     Active Substance: DIMETHYL FUMARATE
     Indication: MULTIPLE SCLEROSIS
     Route: 048
     Dates: start: 20131028

REACTIONS (24)
  - Fatigue [Not Recovered/Not Resolved]
  - Anxiety [Not Recovered/Not Resolved]
  - Memory impairment [Unknown]
  - Multiple sclerosis [Unknown]
  - Muscle tightness [Unknown]
  - Hot flush [Recovered/Resolved]
  - Fall [Recovered/Resolved]
  - Paraesthesia oral [Recovered/Resolved]
  - Hypoaesthesia [Not Recovered/Not Resolved]
  - Paraesthesia [Recovered/Resolved]
  - Feeling abnormal [Unknown]
  - Urinary incontinence [Unknown]
  - General physical health deterioration [Not Recovered/Not Resolved]
  - Malaise [Recovered/Resolved]
  - Prescribed underdose [Unknown]
  - Bladder disorder [Unknown]
  - Underdose [Unknown]
  - Sleep disorder [Unknown]
  - Peroneal nerve palsy [Not Recovered/Not Resolved]
  - Feeling hot [Recovered/Resolved]
  - Ankle fracture [Recovered/Resolved]
  - Urinary tract infection [Unknown]
  - Mobility decreased [Unknown]
  - Erythema [Recovered/Resolved]

NARRATIVE: CASE EVENT DATE: 20131026
